FAERS Safety Report 14347256 (Version 1)
Quarter: 2018Q1

REPORT INFORMATION
  Report Type: Spontaneous
  Country: US (occurrence: US)
  Receive Date: 20180102
  Receipt Date: 20180102
  Transmission Date: 20180509
  Serious: Yes (Other)
  Sender: FDA-Public Use
  Company Number: None

PATIENT
  Age: 49 Year
  Sex: Female
  Weight: 99 kg

DRUGS (5)
  1. SERTRALINE [Concomitant]
     Active Substance: SERTRALINE HYDROCHLORIDE
  2. BUPROPION XL [Concomitant]
     Active Substance: BUPROPION
  3. ESTRADIOL. [Concomitant]
     Active Substance: ESTRADIOL
  4. ADVIL [Concomitant]
     Active Substance: IBUPROFEN
  5. BUPROPION XL 300 MG [Suspect]
     Active Substance: BUPROPION
     Indication: DEPRESSION
     Dosage: ?          QUANTITY:90 TABLET(S);?
     Route: 048
     Dates: start: 20171225

REACTIONS (12)
  - Anxiety [None]
  - Tremor [None]
  - Product substitution issue [None]
  - Depression [None]
  - Nausea [None]
  - Drug ineffective [None]
  - Suicide attempt [None]
  - Suicidal ideation [None]
  - Product size issue [None]
  - Migraine [None]
  - Balance disorder [None]
  - Insomnia [None]

NARRATIVE: CASE EVENT DATE: 20171229
